FAERS Safety Report 24239113 (Version 1)
Quarter: 2024Q3

REPORT INFORMATION
  Report Type: Spontaneous
  Country: US (occurrence: US)
  Receive Date: 20240822
  Receipt Date: 20240822
  Transmission Date: 20241016
  Serious: No
  Sender: AVADEL CNS PHARMA
  Company Number: US-AVADEL CNS PHARMACEUTICALS, LLC-2024AVA01251

PATIENT
  Sex: Female

DRUGS (13)
  1. LUMRYZ [Suspect]
     Active Substance: SODIUM OXYBATE
     Indication: Narcolepsy
     Dosage: UNK
     Dates: start: 20240629, end: 2024
  2. LUMRYZ [Suspect]
     Active Substance: SODIUM OXYBATE
     Indication: Narcolepsy
     Dosage: 7.5 G
     Dates: start: 2024, end: 202407
  3. LUMRYZ [Suspect]
     Active Substance: SODIUM OXYBATE
     Indication: Narcolepsy
     Dosage: 2/3 OF THE 9 G PACKET (6 G)
     Dates: start: 202407
  4. METHOTREXATE [Concomitant]
     Active Substance: METHOTREXATE
     Indication: Arthritis
     Dosage: UNK, 1X/WEEK
  5. UNSPECIFIED INGREDIENT [Concomitant]
     Active Substance: UNSPECIFIED INGREDIENT
  6. CLONAZEPAM [Concomitant]
     Active Substance: CLONAZEPAM
     Dosage: HALF A TABLET (0.5 MG)
  7. LEVOTHYROXINE [Concomitant]
     Active Substance: LEVOTHYROXINE\LEVOTHYROXINE SODIUM
     Dosage: ^0.5^
  8. AMITRIPTYLINE [Concomitant]
     Active Substance: AMITRIPTYLINE
     Dosage: 15 MG, 1X/DAY
  9. FOLIC ACID [Concomitant]
     Active Substance: FOLIC ACID
     Dosage: UNK, 1X/DAY
  10. VITAMIN B12 [Concomitant]
     Active Substance: CYANOCOBALAMIN
     Dosage: UNK, 1X/DAY
  11. VITAMIN D3 [Concomitant]
     Active Substance: CHOLECALCIFEROL
     Dosage: UNK, 1X/DAY
  12. ARMODAFINIL [Concomitant]
     Active Substance: ARMODAFINIL
  13. LISINOPRIL [Concomitant]
     Active Substance: LISINOPRIL

REACTIONS (8)
  - Rheumatoid arthritis [Not Recovered/Not Resolved]
  - Balance disorder [Recovering/Resolving]
  - Malaise [Recovering/Resolving]
  - Feeling abnormal [Recovering/Resolving]
  - Hallucination [Recovering/Resolving]
  - Dizziness [Recovering/Resolving]
  - Nausea [Recovered/Resolved]
  - Wrong technique in product usage process [Not Recovered/Not Resolved]

NARRATIVE: CASE EVENT DATE: 20240101
